FAERS Safety Report 4471323-5 (Version None)
Quarter: 2004Q3

REPORT INFORMATION
  Report Type: 
  Country: None (occurrence: None)
  Receive Date: 20040909
  Receipt Date: 20040525
  Transmission Date: 20050211
  Serious: Yes (Hospitalization)
  Sender: FDA-Public Use
  Company Number: F03200400043

PATIENT
  Age: 51 Year
  Sex: Female
  Weight: 101.1521 kg

DRUGS (9)
  1. OXALIPLATIN-SOLUTION- [Suspect]
     Indication: COLORECTAL CANCER
     Dosage: 170 MG Q2W INTRAVENOUS NOS
     Route: 042
     Dates: start: 20040517, end: 20040517
  2. CAPECEITABINE [Suspect]
     Indication: COLORECTAL CANCER
     Dosage: 3320 MG QD ORAL
     Route: 048
     Dates: start: 20040517, end: 20040520
  3. AVASTIN [Suspect]
     Indication: COLORECTAL CANCER
  4. IPRATROPIUM BROMIDE/ALBUTEROL SULFATE [Concomitant]
  5. ALPRAZOLAM [Concomitant]
  6. ESOMEPRAZOLE [Concomitant]
  7. ZOLPIDEM TARTRATE [Concomitant]
  8. FLUOXETINE HYDROCHLORIDE [Concomitant]
  9. TRAZODONE HCL [Concomitant]

REACTIONS (3)
  - DEHYDRATION [None]
  - DIARRHOEA [None]
  - SYNCOPE [None]
